FAERS Safety Report 8034122-3 (Version None)
Quarter: 2012Q1

REPORT INFORMATION
  Report Type: 
  Country: None (occurrence: None)
  Receive Date: 20120110
  Receipt Date: 20111231
  Transmission Date: 20120608
  Serious: Yes (Other)
  Sender: FDA-Public Use
  Company Number: US-ACTELION-A-US2011-59020

PATIENT

DRUGS (3)
  1. NITROGLYCERIN [Concomitant]
  2. OXYGEN [Concomitant]
  3. TRACLEER [Suspect]
     Indication: PULMONARY ARTERIAL HYPERTENSION
     Dosage: UNK
     Route: 048
     Dates: start: 20100823

REACTIONS (5)
  - NASOPHARYNGITIS [None]
  - ANGINA PECTORIS [None]
  - COUGH [None]
  - DYSPNOEA [None]
  - FATIGUE [None]
